FAERS Safety Report 4574182-5 (Version None)
Quarter: 2005Q1

REPORT INFORMATION
  Report Type: 
  Country: None (occurrence: None)
  Receive Date: 20050208
  Receipt Date: 20050127
  Transmission Date: 20050727
  Serious: Yes (Death, Hospitalization, Other)
  Sender: FDA-Public Use
  Company Number: JP-NOVOPROD-241981

PATIENT
  Age: 47 Year
  Sex: Female

DRUGS (9)
  1. NOVORAPID CHU FLEXPEN [Suspect]
     Indication: DIABETES MELLITUS INSULIN-DEPENDENT
     Dosage: 19 IU, QD
     Route: 058
     Dates: start: 20031206, end: 20040129
  2. PENFILL N CHU [Suspect]
     Indication: DIABETES MELLITUS INSULIN-DEPENDENT
     Dosage: 4 IU, QD
     Route: 058
     Dates: start: 20031206, end: 20040129
  3. MUCOSTA [Concomitant]
     Dosage: 300 MG, QD
     Route: 048
     Dates: start: 20020910, end: 20040128
  4. MEDICON [Concomitant]
     Dosage: 45 MG, QD
     Route: 048
     Dates: start: 20020910, end: 20040128
  5. GASTER [Concomitant]
     Dosage: 20 MG, QD
     Route: 048
     Dates: start: 20020910, end: 20040128
  6. RISUMIC [Concomitant]
     Dosage: 10 MG, QD
     Route: 048
     Dates: start: 20020910, end: 20040128
  7. ASPIRIN [Concomitant]
     Dosage: 10 MG, QD
     Route: 048
     Dates: start: 20020910, end: 20040128
  8. WARFARIN SODIUM [Concomitant]
     Dosage: 2 MG, QD
     Route: 048
     Dates: start: 20020910, end: 20040128
  9. CALCIUM CARBONATE [Concomitant]

REACTIONS (2)
  - CEREBRAL HAEMORRHAGE [None]
  - HYPOGLYCAEMIA [None]
